FAERS Safety Report 21852949 (Version 1)
Quarter: 2023Q1

REPORT INFORMATION
  Report Type: Spontaneous
  Country: FR (occurrence: FR)
  Receive Date: 20230112
  Receipt Date: 20230112
  Transmission Date: 20230418
  Serious: Yes (Other)
  Sender: FDA-Public Use
  Company Number: None

PATIENT
  Age: 28 Year
  Sex: Male
  Weight: 80 kg

DRUGS (3)
  1. TAMIFLU [Suspect]
     Active Substance: OSELTAMIVIR PHOSPHATE
     Indication: Influenza
     Route: 065
     Dates: start: 20221224, end: 20221224
  2. DEXTROMETHORPHAN HYDROBROMIDE [Suspect]
     Active Substance: DEXTROMETHORPHAN HYDROBROMIDE
     Indication: Cough
     Route: 065
     Dates: start: 20221224, end: 20221224
  3. DOLIPRANE [Suspect]
     Active Substance: ACETAMINOPHEN
     Indication: Influenza
     Route: 065
     Dates: start: 20221224, end: 20221224

REACTIONS (2)
  - Vomiting [Recovered/Resolved]
  - Dizziness [Recovered/Resolved]

NARRATIVE: CASE EVENT DATE: 20221224
